FAERS Safety Report 9929929 (Version 1)
Quarter: 2014Q1

REPORT INFORMATION
  Report Type: Spontaneous
  Country: US (occurrence: US)
  Receive Date: 20140227
  Receipt Date: 20140227
  Transmission Date: 20141002
  Serious: Yes (Hospitalization, Other)
  Sender: FDA-Public Use
  Company Number: US-RB-063821-14

PATIENT
  Age: 34 Year
  Sex: Male

DRUGS (4)
  1. SUBOXONE TABLET [Suspect]
     Indication: DRUG DEPENDENCE
     Dosage: PRESCRIBED 24 MG DAILY, FURTHER DOSING DETAILS UNKNOWN
     Route: 060
     Dates: start: 2013, end: 2013
  2. SUBOXONE FILM [Suspect]
     Indication: DRUG DEPENDENCE
     Dosage: PRESCRIBED 24 MG DAILY, FURTHER DOSING DETAILS UNKNOWN
     Route: 060
     Dates: start: 2013, end: 2013
  3. BUPRENORPHINE GENERIC [Suspect]
     Indication: DRUG DEPENDENCE
     Dosage: PRESCRIBED 24 MG DAILY, FURTHER DOSING DETAILS UNKNOWN
     Route: 060
     Dates: start: 2013
  4. NICOTINE [Concomitant]
     Indication: NICOTINE DEPENDENCE
     Dosage: DOSING DETAILS UNKNOWN; TAKING DAILY SINCE AGE 10.
     Route: 055
     Dates: start: 1990

REACTIONS (7)
  - Substance abuse [Not Recovered/Not Resolved]
  - Hypersensitivity [Not Recovered/Not Resolved]
  - Nausea [Recovered/Resolved]
  - Vomiting [Recovered/Resolved]
  - Pulmonary mass [Not Recovered/Not Resolved]
  - Renal mass [Not Recovered/Not Resolved]
  - Pneumothorax [Unknown]
